FAERS Safety Report 9857147 (Version 2)
Quarter: 2014Q2

REPORT INFORMATION
  Report Type: Spontaneous
  Country: NZ (occurrence: None)
  Receive Date: 20140128
  Receipt Date: 20140422
  Transmission Date: 20141212
  Serious: Yes (Other)
  Sender: FDA-Public Use
  Company Number: KAD201401-000083

PATIENT
  Age: 45 Year
  Sex: Female
  Weight: 65.2 kg

DRUGS (14)
  1. RIBAVIRIN (RIBAVIRIN) [Suspect]
     Dosage: 600 MG AM AND 400 MG PM, 1000 MG, TWICE DAILY, ORAL
     Route: 048
     Dates: start: 20130729, end: 201402
  2. GS-7977 [Suspect]
     Route: 048
     Dates: start: 20130729, end: 201402
  3. CITALOPRAM (CITALOPRAM) [Concomitant]
  4. SPIRONOLACTONE (SPIRONOLACTONE) [Concomitant]
  5. CODIENE (CODIENE) [Concomitant]
  6. SEVREDOL (MORPHINE SULPHATE) [Concomitant]
  7. ENSURE POWDER (ENSURE) [Concomitant]
  8. LOCOID SCALP SOLTION (HYDROCORTISONE BUTYRATE) [Concomitant]
  9. AQAUEOUS CREAM (WATER PURIFIED) [Concomitant]
  10. BONJELA (CHOLINE SALICYLATE, CETALKONIUM CHLORIDE) [Concomitant]
  11. PARACETAMOL (ACETAMINOPHEN) [Concomitant]
  12. PHENERGAN (PROMETHAZINE) [Concomitant]
  13. RISPERIDONE (RISPERIDONE) [Concomitant]
  14. DIAZEPAM (DIAZEPAM) [Concomitant]

REACTIONS (13)
  - Drug abuse [None]
  - Agitation [None]
  - Cellulitis [None]
  - Skin lesion [None]
  - Dizziness [None]
  - Dysgeusia [None]
  - Gingival ulceration [None]
  - Arthralgia [None]
  - Alopecia [None]
  - Mania [None]
  - Vulvovaginal candidiasis [None]
  - Urinary tract infection [None]
  - Arthralgia [None]
